FAERS Safety Report 19237300 (Version 6)
Quarter: 2021Q3

REPORT INFORMATION
  Report Type: Report from Study
  Country: US (occurrence: US)
  Receive Date: 20210510
  Receipt Date: 20210722
  Transmission Date: 20211014
  Serious: No
  Sender: FDA-Public Use
  Company Number: US-AGIOS-2104US02718

PATIENT

DRUGS (5)
  1. VENCLEXTA [Concomitant]
     Active Substance: VENETOCLAX
     Indication: ACUTE MYELOID LEUKAEMIA
     Dosage: 100 MILLIGRAM, 4 TABLETS (400 MG), QD
     Route: 048
     Dates: start: 20210426
  2. TIBSOVO [Suspect]
     Active Substance: IVOSIDENIB
     Dosage: 250 MILLIGRAM, 2 TABLETS (500 MG), QD
     Route: 048
     Dates: start: 202104
  3. VENCLEXTA [Concomitant]
     Active Substance: VENETOCLAX
     Dosage: 100 MILLIGRAM, 4 TABLETS (400 MG), QD
     Route: 048
     Dates: start: 202104
  4. TIBSOVO [Suspect]
     Active Substance: IVOSIDENIB
     Indication: ACUTE MYELOID LEUKAEMIA
     Dosage: 250 MILLIGRAM, 2 TABLETS (500 MG), QD
     Route: 048
     Dates: start: 20210426
  5. TIBSOVO [Suspect]
     Active Substance: IVOSIDENIB
     Dosage: 250 MILLIGRAM, 2 TABLETS (500 MG), QD
     Route: 048
     Dates: start: 202104

REACTIONS (10)
  - Anxiety [Unknown]
  - Stress [Unknown]
  - Tracheal pain [Unknown]
  - Blood count abnormal [Unknown]
  - Nausea [Unknown]
  - Constipation [Unknown]
  - Product dose omission issue [Recovered/Resolved]
  - White blood cell count decreased [Unknown]
  - Platelet count decreased [Unknown]
  - Haemoglobin decreased [Unknown]

NARRATIVE: CASE EVENT DATE: 20210429
